FAERS Safety Report 5915169-7 (Version None)
Quarter: 2008Q4

REPORT INFORMATION
  Report Type: 
  Country: None (occurrence: None)
  Receive Date: 20081010
  Receipt Date: 20081001
  Transmission Date: 20090506
  Serious: Yes (Hospitalization)
  Sender: FDA-Public Use
  Company Number: US-TYCO HEALTHCARE/MALLINCKRODT-T200801606

PATIENT

DRUGS (1)
  1. SODIUM IODIDE I 131 /THERAPY/ CAP [Suspect]
     Indication: DRUG USE FOR UNKNOWN INDICATION
     Dosage: 3 CAPSULES
     Dates: start: 20080101, end: 20080101

REACTIONS (2)
  - LOCAL SWELLING [None]
  - SINUS HEADACHE [None]
